FAERS Safety Report 15280166 (Version 1)
Quarter: 2018Q4

REPORT INFORMATION
  Report Type: Other
  Country: ES (occurrence: ES)
  Receive Date: 20180815
  Receipt Date: 20180815
  Transmission Date: 20190204
  Serious: Yes (Hospitalization)
  Sender: FDA-Public Use
  Company Number: ES-B. BRAUN MEDICAL INC.-2053743

PATIENT
  Age: 78 Year
  Sex: Male

DRUGS (1)
  1. CEFTAZIDIME AND DEXTROSE [Suspect]
     Active Substance: CEFTAZIDIME

REACTIONS (1)
  - Thrombocytopenia [None]
